FAERS Safety Report 20454785 (Version 2)
Quarter: 2022Q1

REPORT INFORMATION
  Report Type: Spontaneous
  Country: JP (occurrence: JP)
  Receive Date: 20220210
  Receipt Date: 20220217
  Transmission Date: 20220423
  Serious: Yes (Hospitalization, Other)
  Sender: FDA-Public Use
  Company Number: JP-BAYER-2021-202677

PATIENT
  Age: 31 Year
  Sex: Female
  Weight: 44 kg

DRUGS (1)
  1. MIRENA [Suspect]
     Active Substance: LEVONORGESTREL
     Indication: Contraception
     Dosage: 20?G/DAY
     Route: 015
     Dates: start: 2013, end: 20210919

REACTIONS (10)
  - Peritonitis [None]
  - Tubo-ovarian abscess [None]
  - Ileus [None]
  - Actinomycosis [None]
  - Abortion spontaneous [None]
  - Pregnancy with contraceptive device [None]
  - Puerperal pyrexia [None]
  - Device issue [None]
  - Drug ineffective [None]
  - Device use issue [None]

NARRATIVE: CASE EVENT DATE: 20210101
